FAERS Safety Report 8094170-4 (Version None)
Quarter: 2012Q1

REPORT INFORMATION
  Report Type: 
  Country: None (occurrence: None)
  Receive Date: 20120130
  Receipt Date: 20120130
  Transmission Date: 20120608
  Serious: No
  Sender: FDA-Public Use
  Company Number: None

PATIENT
  Age: 70 Year
  Sex: Female
  Weight: 81.646 kg

DRUGS (2)
  1. LEVOFLOXACIN [Concomitant]
     Indication: DIVERTICULUM
     Dosage: 1
     Route: 048
     Dates: start: 20120106, end: 20120119
  2. CIPROFLOXACIN [Suspect]
     Indication: DIVERTICULUM
     Route: 048
     Dates: start: 20111207, end: 20111220

REACTIONS (2)
  - PRODUCT SOLUBILITY ABNORMAL [None]
  - DYSPHAGIA [None]
